APPROVED DRUG PRODUCT: GLYCOPYRROLATE
Active Ingredient: GLYCOPYRROLATE
Strength: 1MG
Dosage Form/Route: TABLET;ORAL
Application: A091413 | Product #001 | TE Code: AA
Applicant: NATCO PHARMA LTD
Approved: Jun 20, 2016 | RLD: No | RS: No | Type: RX